FAERS Safety Report 24167888 (Version 1)
Quarter: 2024Q3

REPORT INFORMATION
  Report Type: Spontaneous
  Country: US (occurrence: None)
  Receive Date: 20240802
  Receipt Date: 20240802
  Transmission Date: 20241016
  Serious: No
  Sender: Public
  Company Number: None

PATIENT
  Age: 89 Year
  Sex: Male
  Weight: 64.8 kg

DRUGS (1)
  1. XIFAXAN [Suspect]
     Active Substance: RIFAXIMIN

REACTIONS (2)
  - Nasal discomfort [None]
  - Oral discomfort [None]

NARRATIVE: CASE EVENT DATE: 20240801
